FAERS Safety Report 17116025 (Version 1)
Quarter: 2019Q4

REPORT INFORMATION
  Report Type: Spontaneous
  Country: DE (occurrence: DE)
  Receive Date: 20191205
  Receipt Date: 20191205
  Transmission Date: 20200122
  Serious: Yes (Hospitalization)
  Sender: FDA-Public Use
  Company Number: DE-SA-2019SA280360

PATIENT

DRUGS (4)
  1. CEFUROXIM [CEFUROXIME] [Concomitant]
     Active Substance: CEFUROXIME
     Indication: INFECTION PROPHYLAXIS
     Dosage: 500 MG, BID
     Route: 048
     Dates: start: 20191104, end: 20191111
  2. DUPILUMAB [Suspect]
     Active Substance: DUPILUMAB
     Indication: DERMATITIS ATOPIC
     Dosage: 300 MG, QOW
     Route: 058
     Dates: start: 20181017
  3. NOVALGIN (METAMIZOLE SODIUM) [Concomitant]
     Active Substance: METAMIZOLE SODIUM
     Indication: PAIN
     Dosage: 30 GTT DROPS, QD
     Route: 048
     Dates: start: 20191104, end: 20191121
  4. DICLAC [DICLOFENAC SODIUM] [Concomitant]
     Active Substance: DICLOFENAC SODIUM
     Indication: PAIN
     Dosage: 50 MG, TID
     Route: 048
     Dates: start: 20191104, end: 20191121

REACTIONS (4)
  - Sleep apnoea syndrome [Recovering/Resolving]
  - Alopecia areata [Not Recovered/Not Resolved]
  - Conjunctivitis [Not Recovered/Not Resolved]
  - Snoring [Recovering/Resolving]

NARRATIVE: CASE EVENT DATE: 20190404
